FAERS Safety Report 8850608 (Version 5)
Quarter: 2014Q2

REPORT INFORMATION
  Report Type: Spontaneous
  Country: US (occurrence: US)
  Receive Date: 20121019
  Receipt Date: 20140506
  Transmission Date: 20141212
  Serious: Yes (Hospitalization)
  Sender: FDA-Public Use
  Company Number: US-ASTRAZENECA-2012SE78388

PATIENT
  Age: 849 Month
  Sex: Female
  Weight: 72.6 kg

DRUGS (6)
  1. SYMBICORT PMDI [Suspect]
     Indication: CHRONIC OBSTRUCTIVE PULMONARY DISEASE
     Dosage: 160/4.5, 2 PUFFS, TWO TIMES A DAY
     Route: 055
     Dates: start: 2010
  2. SYMBICORT PMDI [Suspect]
     Indication: CHRONIC OBSTRUCTIVE PULMONARY DISEASE
     Dosage: 80/4.5 MCG, UNKNOWN FREQUENCY
     Route: 055
     Dates: start: 201403, end: 201403
  3. PRILOSEC [Suspect]
     Indication: GASTROOESOPHAGEAL REFLUX DISEASE
     Dosage: TWO TIMES A DAY
     Route: 048
  4. THYROID MEDICATION [Concomitant]
     Indication: THYROID DISORDER
  5. REMERON [Concomitant]
     Indication: DEPRESSION
  6. LEVOSTATIN [Concomitant]
     Indication: BLOOD CHOLESTEROL ABNORMAL

REACTIONS (7)
  - Chronic obstructive pulmonary disease [Unknown]
  - Influenza [Unknown]
  - Bronchitis [Unknown]
  - Malaise [Unknown]
  - Influenza like illness [Unknown]
  - Drug dose omission [Unknown]
  - Incorrect dose administered [Unknown]
